FAERS Safety Report 20025002 (Version 1)
Quarter: 2021Q4

REPORT INFORMATION
  Report Type: Spontaneous
  Country: DO (occurrence: None)
  Receive Date: 20211102
  Receipt Date: 20211102
  Transmission Date: 20220303
  Serious: Yes (Other)
  Sender: FDA-Public Use
  Company Number: 2021A791924

PATIENT
  Age: 2233 Week
  Sex: Female

DRUGS (2)
  1. CALQUENCE [Suspect]
     Active Substance: ACALABRUTINIB
     Route: 048
     Dates: start: 20210923, end: 20211027
  2. LANTUS [Concomitant]
     Active Substance: INSULIN GLARGINE
     Dosage: 10 UNITS SC IN THE MORNING.
     Route: 065
     Dates: start: 202106

REACTIONS (7)
  - Rash [Unknown]
  - Blood creatinine increased [Unknown]
  - Hyperuricaemia [Unknown]
  - Febrile neutropenia [Unknown]
  - Breast haematoma [Unknown]
  - Blood phosphorus abnormal [Unknown]
  - Haemoglobin abnormal [Unknown]

NARRATIVE: CASE EVENT DATE: 20211003
